FAERS Safety Report 20951649 (Version 1)
Quarter: 2022Q2

REPORT INFORMATION
  Report Type: Spontaneous
  Country: US (occurrence: US)
  Receive Date: 20220613
  Receipt Date: 20220613
  Transmission Date: 20220720
  Serious: Yes (Other)
  Sender: FDA-Public Use
  Company Number: US-009507513-2206USA002569

PATIENT
  Age: 86 Year
  Sex: Male

DRUGS (2)
  1. KEYTRUDA [Suspect]
     Active Substance: PEMBROLIZUMAB
     Indication: Skin angiosarcoma
     Dosage: 2 MG/KG EVERY 3 WEEKS; COMPLETED 2 CYCLES
  2. PYRIDOSTIGMINE [Concomitant]
     Active Substance: PYRIDOSTIGMINE
     Indication: Myasthenia gravis
     Dosage: 120 MILLIGRAM, THREE TIMES A DAY
     Route: 048

REACTIONS (2)
  - Immune-mediated uveitis [Recovered/Resolved]
  - Product use in unapproved indication [Unknown]
